FAERS Safety Report 21778316 (Version 1)
Quarter: 2022Q4

REPORT INFORMATION
  Report Type: Spontaneous
  Country: US (occurrence: US)
  Receive Date: 20221226
  Receipt Date: 20221226
  Transmission Date: 20230113
  Serious: No
  Sender: FDA-Public Use
  Company Number: US-MIGRATION_PFIZER-2022BHV002988

PATIENT
  Age: 55 Year
  Sex: Female
  Weight: 75.364 kg

DRUGS (1)
  1. NURTEC ODT [Suspect]
     Active Substance: RIMEGEPANT SULFATE
     Indication: Migraine
     Dosage: UNABLE TO PROVIDE NDC, LOT, OR EXPIRATION DETAILS, THREW AWAY PACKAGES
     Route: 048
     Dates: start: 20221021, end: 20221021

REACTIONS (2)
  - Rash pruritic [Recovered/Resolved]
  - Hypersensitivity [Recovered/Resolved]

NARRATIVE: CASE EVENT DATE: 20221021
